FAERS Safety Report 5263715-1 (Version None)
Quarter: 2007Q1

REPORT INFORMATION
  Report Type: 
  Country: None (occurrence: None)
  Receive Date: 20070313
  Receipt Date: 20070308
  Transmission Date: 20070707
  Serious: Yes (Death, Other)
  Sender: FDA-Public Use
  Company Number: 2007UW04569

PATIENT
  Age: 80 Year
  Sex: Female
  Weight: 63.8 kg

DRUGS (1)
  1. ARIMIDEX [Suspect]
     Indication: BREAST CANCER
     Route: 048
     Dates: start: 20060801

REACTIONS (4)
  - DEATH [None]
  - FRACTURE [None]
  - HIP FRACTURE [None]
  - UPPER LIMB FRACTURE [None]
